FAERS Safety Report 14006916 (Version 1)
Quarter: 2017Q3

REPORT INFORMATION
  Report Type: Spontaneous
  Country: US (occurrence: None)
  Receive Date: 20170922
  Receipt Date: 20170922
  Transmission Date: 20171128
  Serious: No
  Sender: FDA-Public Use
  Company Number: None

PATIENT
  Sex: Female

DRUGS (1)
  1. FORTEO [Suspect]
     Active Substance: TERIPARATIDE
     Dosage: 6/27/2017 TO CURRENTLY ON HOLD FOR 1 MONTH
     Route: 058
     Dates: start: 20170627

REACTIONS (6)
  - Dizziness [None]
  - Therapy cessation [None]
  - Palpitations [None]
  - Pain in jaw [None]
  - Headache [None]
  - Nervousness [None]
